FAERS Safety Report 8041087-7 (Version None)
Quarter: 2012Q1

REPORT INFORMATION
  Report Type: 
  Country: None (occurrence: None)
  Receive Date: 20120109
  Receipt Date: 20120104
  Transmission Date: 20120608
  Serious: Yes (Other)
  Sender: FDA-Public Use
  Company Number: 2009-200154-NL

PATIENT
  Age: 31 Year
  Sex: Female
  Weight: 104.3273 kg

DRUGS (1)
  1. NUVARING [Suspect]
     Indication: CONTRACEPTION
     Dates: start: 20060901, end: 20070701

REACTIONS (7)
  - DEEP VEIN THROMBOSIS [None]
  - CAESAREAN SECTION [None]
  - THROMBOPHLEBITIS SUPERFICIAL [None]
  - MATERNAL EXPOSURE BEFORE PREGNANCY [None]
  - CHOLECYSTITIS CHRONIC [None]
  - CHOLELITHIASIS [None]
  - PULMONARY EMBOLISM [None]
